FAERS Safety Report 9214386 (Version 1)
Quarter: 2013Q2

REPORT INFORMATION
  Report Type: Report from Study
  Country: CA (occurrence: CA)
  Receive Date: 20130405
  Receipt Date: 20130405
  Transmission Date: 20140414
  Serious: Yes (Other)
  Sender: FDA-Public Use
  Company Number: CA-JNJFOC-20130317853

PATIENT
  Age: 35 Year
  Sex: Female
  Weight: 100 kg

DRUGS (4)
  1. REMICADE [Suspect]
     Indication: CROHN^S DISEASE
     Route: 042
     Dates: start: 201210
  2. PAXIL [Concomitant]
     Route: 065
  3. IRON [Concomitant]
     Route: 065
  4. SEROQUEL [Concomitant]
     Route: 065

REACTIONS (2)
  - Bipolar disorder [Unknown]
  - Skin lesion [Recovering/Resolving]
